FAERS Safety Report 10535841 (Version 1)
Quarter: 2014Q4

REPORT INFORMATION
  Report Type: Spontaneous
  Country: US (occurrence: US)
  Receive Date: 20141022
  Receipt Date: 20141022
  Transmission Date: 20150529
  Serious: No
  Sender: FDA-Public Use
  Company Number: US-RECKITT BENCKISER PHARMACEUTICAL, INC-RB-60239-2013

PATIENT

DRUGS (3)
  1. SUBOXONE [Suspect]
     Active Substance: BUPRENORPHINE HYDROCHLORIDE\NALOXONE HYDROCHLORIDE
     Indication: DRUG DEPENDENCE
     Dosage: SUBOXONE FILM; HE WAS GIVEN AN 8 MG FILM INDUCTION DOSE AND VOMITED
     Route: 060
     Dates: start: 20121016, end: 20121016
  2. SUBOXONE [Suspect]
     Active Substance: BUPRENORPHINE HYDROCHLORIDE\NALOXONE HYDROCHLORIDE
     Dosage: SUBOXONE FILM; 2-4 MG DAILY
     Route: 060
     Dates: start: 20121017, end: 201309
  3. BUPRENORPHINE GENERIC [Suspect]
     Active Substance: BUPRENORPHINE
     Indication: DRUG DEPENDENCE
     Dosage: FURTHER DOSING DETAILS UNKNOWN; CUT IT INTO PIECES AND MADE IT LAST 1 WEEK
     Route: 060
     Dates: start: 20131012, end: 20131019

REACTIONS (11)
  - Restlessness [Recovered/Resolved]
  - Insomnia [Recovered/Resolved]
  - Off label use [Recovered/Resolved]
  - Vomiting [Recovered/Resolved]
  - Drug withdrawal syndrome [Recovered/Resolved]
  - Substance abuse [Recovered/Resolved]
  - Decreased appetite [Recovering/Resolving]
  - Wrong technique in drug usage process [Recovered/Resolved]
  - Asthenia [Recovering/Resolving]
  - Intentional underdose [Recovered/Resolved]
  - Drug dependence [Recovered/Resolved]

NARRATIVE: CASE EVENT DATE: 20121016
